FAERS Safety Report 17679728 (Version 2)
Quarter: 2020Q4

REPORT INFORMATION
  Report Type: Spontaneous
  Country: US (occurrence: US)
  Receive Date: 20200417
  Receipt Date: 20201006
  Transmission Date: 20210113
  Serious: No
  Sender: FDA-Public Use
  Company Number: US-SA-2020SA100083

PATIENT

DRUGS (1)
  1. DUPIXENT [Suspect]
     Active Substance: DUPILUMAB
     Indication: NASAL POLYPS
     Dosage: 300 MG, QOW
     Route: 058
     Dates: start: 20200228

REACTIONS (5)
  - Pruritus [Unknown]
  - Ocular hyperaemia [Recovered/Resolved]
  - Skin exfoliation [Unknown]
  - Dry skin [Unknown]
  - Erythema [Unknown]

NARRATIVE: CASE EVENT DATE: 2020
